FAERS Safety Report 4375116-9 (Version None)
Quarter: 2004Q2

REPORT INFORMATION
  Report Type: 
  Country: None (occurrence: None)
  Receive Date: 20040603
  Receipt Date: 20040526
  Transmission Date: 20050107
  Serious: Yes (Death)
  Sender: FDA-Public Use
  Company Number: FR-JNJFOC-20040506536

PATIENT
  Age: 65 Year
  Sex: Male

DRUGS (15)
  1. RISPERDAL [Suspect]
     Indication: ABNORMAL BEHAVIOUR
     Dosage: 3 MG, 1 IN 1 DAY, ORAL
     Route: 048
     Dates: start: 20040423, end: 20040525
  2. SEVREDOL (MORPHINE SULFATE) [Concomitant]
  3. ATHYMIL (MIANSERIN HYDROCHLORIDE) [Concomitant]
  4. LEXOMIL (BROMAZEPAM) [Concomitant]
  5. NOCTRAN (NOCTRAN 10) [Concomitant]
  6. GLUCOPHAGE [Concomitant]
  7. DIAMICRON (GLICLAZIDE) [Concomitant]
  8. COZAAR [Concomitant]
  9. NICARDIPINE HCL [Concomitant]
  10. ACETAMINOPHEN [Concomitant]
  11. SULFARLEM        (ANETHOLE TRITHIONE) [Concomitant]
  12. NIFLURIL         (NIFLUMIC ACID) [Concomitant]
  13. ASPIRIN [Concomitant]
  14. RHINOFLUIMUCIL        (RHINOFLUIMUCIL) [Concomitant]
  15. COLD CREAM NATUREL          (COLD CREAM) [Concomitant]

REACTIONS (2)
  - PYREXIA [None]
  - RESPIRATORY ARREST [None]
